FAERS Safety Report 8377779-X (Version None)
Quarter: 2012Q2

REPORT INFORMATION
  Report Type: 
  Country: None (occurrence: None)
  Receive Date: 20120522
  Receipt Date: 20120509
  Transmission Date: 20120825
  Serious: Yes (Other)
  Sender: FDA-Public Use
  Company Number: ES-JNJFOC-20120308156

PATIENT
  Sex: Female

DRUGS (1)
  1. REMICADE [Suspect]
     Indication: ACCIDENTAL EXPOSURE
     Route: 050

REACTIONS (3)
  - PRURITUS [None]
  - VULVOVAGINAL PRURITUS [None]
  - LIP SWELLING [None]
